FAERS Safety Report 8763341 (Version 1)
Quarter: 2012Q4

REPORT INFORMATION
  Report Type: Spontaneous
  Country: DE (occurrence: None)
  Receive Date: 20120828
  Receipt Date: 20120828
  Transmission Date: 20130627
  Serious: Yes (Other)
  Sender: FDA-Public Use
  Company Number: GER/GER/12/0025466

PATIENT
  Age: 39 Year
  Sex: Female
  Weight: 134 kg

DRUGS (5)
  1. CETIRIZINE (CETIRIZINE) [Suspect]
     Indication: HAY FEVER
     Route: 048
     Dates: start: 20110308, end: 20110428
  2. OTRIVEN (XYLOMETAZOLINE HYDROCHLORIDE) [Suspect]
     Indication: RHINITIS
     Route: 045
     Dates: start: 20110308, end: 20111214
  3. AMOXCLAV SANDOZ (AMOXI-CLAVULANICO) [Concomitant]
  4. TD-IMPFSTOFF MERIEUX (DITEMER) [Concomitant]
  5. FEMIBION (FEMIBION) [Concomitant]

REACTIONS (3)
  - Gestational diabetes [None]
  - Maternal exposure during pregnancy [None]
  - Caesarean section [None]
